FAERS Safety Report 16744943 (Version 1)
Quarter: 2019Q3

REPORT INFORMATION
  Report Type: Spontaneous
  Country: BR (occurrence: BR)
  Receive Date: 20190827
  Receipt Date: 20190827
  Transmission Date: 20191005
  Serious: Yes (Hospitalization, Other)
  Sender: FDA-Public Use
  Company Number: BR-SA-2019SA232399

PATIENT
  Age: 12 Year
  Sex: Female

DRUGS (4)
  1. LEFLUNOMIDE. [Suspect]
     Active Substance: LEFLUNOMIDE
     Indication: IMMUNOSUPPRESSION
     Dosage: 20 MG, QD,DAY 1
  2. METHYLPREDNISOLONE. [Suspect]
     Active Substance: METHYLPREDNISOLONE
     Indication: IMMUNOSUPPRESSION
     Dosage: 30 MG/KG, QD
  3. PREDNISONE. [Suspect]
     Active Substance: PREDNISONE
     Indication: IMMUNOSUPPRESSION
     Dosage: UNK
  4. ETANERCEPT [Suspect]
     Active Substance: ETANERCEPT
     Indication: IMMUNOSUPPRESSION
     Dosage: 0.8 MG/KG, DAY 1

REACTIONS (17)
  - Hypotension [Recovering/Resolving]
  - Pyrexia [Recovering/Resolving]
  - Tricuspid valve incompetence [Recovering/Resolving]
  - Hypoxia [Recovering/Resolving]
  - Tachypnoea [Recovering/Resolving]
  - Myocarditis [Recovering/Resolving]
  - Tachycardia [Recovering/Resolving]
  - Mitral valve incompetence [Recovering/Resolving]
  - Pleural effusion [Recovering/Resolving]
  - Bradycardia [Recovering/Resolving]
  - Lung consolidation [Recovering/Resolving]
  - Cough [Recovering/Resolving]
  - Haemophagocytic lymphohistiocytosis [Recovering/Resolving]
  - Rash [Recovering/Resolving]
  - Dyspnoea [Recovering/Resolving]
  - Atelectasis [Recovering/Resolving]
  - Pericardial effusion [Recovering/Resolving]
